FAERS Safety Report 9170939 (Version 1)
Quarter: 2013Q1

REPORT INFORMATION
  Report Type: Spontaneous
  Country: US (occurrence: None)
  Receive Date: 20130315
  Receipt Date: 20130315
  Transmission Date: 20140127
  Serious: Yes (Life-Threatening, Hospitalization, Other)
  Sender: FDA-Public Use
  Company Number: None

PATIENT
  Age: 67 Year
  Sex: Male
  Weight: 91.1 kg

DRUGS (1)
  1. ZOLEDRONIC ACID [Suspect]
     Indication: PROSTATE CANCER
     Route: 042
     Dates: start: 20130124, end: 20130225

REACTIONS (5)
  - Nausea [None]
  - Vomiting [None]
  - Hypophagia [None]
  - Renal failure acute [None]
  - Renal tubular necrosis [None]
